FAERS Safety Report 8493710-0 (Version None)
Quarter: 2012Q3

REPORT INFORMATION
  Report Type: 
  Country: None (occurrence: None)
  Receive Date: 20120706
  Receipt Date: 20120627
  Transmission Date: 20120928
  Serious: Yes (Hospitalization)
  Sender: FDA-Public Use
  Company Number: PHHY2012JP027420

PATIENT
  Sex: Female
  Weight: 48 kg

DRUGS (8)
  1. ANTIHYPERTENSIVES [Concomitant]
  2. BREDININ [Concomitant]
     Indication: RENAL TRANSPLANT
     Dosage: 100 MG, UNK
     Route: 048
  3. ALLOPURINOL [Concomitant]
     Dosage: 100 MG, UNK
     Route: 048
  4. DIOVAN [Concomitant]
     Dosage: 160 MG, UNK
     Route: 048
  5. MEDROL [Concomitant]
     Dosage: 6 MG, UNK
     Route: 048
  6. IMURAN [Concomitant]
     Indication: RENAL TRANSPLANT
     Dosage: 50 MG, UNK
     Route: 048
  7. PREDNISOLONE SODIUM SUCCINATE INJ [Concomitant]
     Indication: RENAL TRANSPLANT
     Route: 048
  8. NEORAL [Suspect]
     Indication: RENAL TRANSPLANT
     Dosage: 220 MG, UNK
     Route: 048

REACTIONS (11)
  - URETERAL SPASM [None]
  - HYPERTENSION [None]
  - PYREXIA [None]
  - C-REACTIVE PROTEIN INCREASED [None]
  - HYDRONEPHROSIS [None]
  - RENAL IMPAIRMENT [None]
  - URINARY TRACT INFECTION [None]
  - BLOOD CREATININE INCREASED [None]
  - MATERNAL EXPOSURE DURING PREGNANCY [None]
  - DEVICE OCCLUSION [None]
  - PREMATURE LABOUR [None]
